FAERS Safety Report 24625261 (Version 1)
Quarter: 2024Q4

REPORT INFORMATION
  Report Type: Spontaneous
  Country: JP (occurrence: JP)
  Receive Date: 20241115
  Receipt Date: 20241115
  Transmission Date: 20250115
  Serious: Yes (Life-Threatening, Hospitalization, Other)
  Sender: BRISTOL-MYERS SQUIBB COMPANY
  Company Number: JP-BRISTOL-MYERS SQUIBB COMPANY-2024-178164

PATIENT
  Sex: Male

DRUGS (1)
  1. OPDIVO [Suspect]
     Active Substance: NIVOLUMAB
     Indication: Pleural mesothelioma malignant
     Dates: start: 20240730, end: 20240730

REACTIONS (8)
  - Cytokine storm [Unknown]
  - Oedema peripheral [Unknown]
  - Dysphagia [Unknown]
  - Decreased appetite [Unknown]
  - Dysphonia [Unknown]
  - Asthenia [Unknown]
  - Tremor [Unknown]
  - Erythema [Unknown]

NARRATIVE: CASE EVENT DATE: 20240101
